FAERS Safety Report 19888033 (Version 1)
Quarter: 2021Q3

REPORT INFORMATION
  Report Type: Spontaneous
  Country: CN (occurrence: CN)
  Receive Date: 20210927
  Receipt Date: 20210927
  Transmission Date: 20211014
  Serious: Yes (Other)
  Sender: FDA-Public Use
  Company Number: CN-ASTRAZENECA-2021A738609

PATIENT
  Age: 26883 Day
  Sex: Male
  Weight: 62 kg

DRUGS (1)
  1. PULMICORT TURBUHALER [Suspect]
     Active Substance: BUDESONIDE
     Indication: SYMPTOMATIC TREATMENT
     Route: 055
     Dates: start: 20210829, end: 20210901

REACTIONS (10)
  - Mouth haemorrhage [Unknown]
  - Hypersensitivity [Recovered/Resolved]
  - Tachypnoea [Recovered/Resolved]
  - Atrial fibrillation [Unknown]
  - Pyrexia [Unknown]
  - Chills [Recovered/Resolved]
  - Platelet count decreased [Recovered/Resolved]
  - Blood pressure increased [Unknown]
  - Cyanosis [Recovered/Resolved]
  - Heart rate increased [Recovered/Resolved]

NARRATIVE: CASE EVENT DATE: 20210901
